FAERS Safety Report 20565414 (Version 2)
Quarter: 2022Q4

REPORT INFORMATION
  Report Type: Spontaneous
  Country: US (occurrence: US)
  Receive Date: 20220308
  Receipt Date: 20221220
  Transmission Date: 20230113
  Serious: Yes (Other)
  Sender: FDA-Public Use
  Company Number: US-KYOWAKIRIN-2022BKK002876

PATIENT

DRUGS (1)
  1. NOURIANZ [Suspect]
     Active Substance: ISTRADEFYLLINE
     Indication: Parkinson^s disease
     Dosage: 40 MG, ONE TABLET DAILY
     Route: 048
     Dates: start: 20200910, end: 20221215

REACTIONS (3)
  - Aneurysm [Not Recovered/Not Resolved]
  - General symptom [Unknown]
  - Condition aggravated [Unknown]
